FAERS Safety Report 8980768 (Version 2)
Quarter: 2013Q1

REPORT INFORMATION
  Report Type: Spontaneous
  Country: US (occurrence: US)
  Receive Date: 20121221
  Receipt Date: 20130131
  Transmission Date: 20140127
  Serious: Yes (Hospitalization)
  Sender: FDA-Public Use
  Company Number: US-ALEXION PHARMACEUTICALS INC.-A201202054

PATIENT
  Sex: Male
  Weight: 73 kg

DRUGS (19)
  1. SOLIRIS 300MG [Suspect]
     Indication: PAROXYSMAL NOCTURNAL HAEMOGLOBINURIA
     Dosage: 600 MG, QW
     Route: 042
     Dates: start: 2011
  2. SOLIRIS 300MG [Suspect]
     Dosage: 900 MG, Q2W
     Route: 042
     Dates: start: 2011
  3. ACYCLOVIR [Concomitant]
     Dosage: 400 MG, BID FOR 30DAYS
     Route: 048
  4. DIFLUCAN [Concomitant]
     Dosage: 200 MG, QD FOR 30DAYS
     Route: 048
  5. AZACITIDINE [Concomitant]
     Dosage: 140 MG, SINGLE
     Route: 058
  6. ONDANSETRON HYDROCHLORIDE [Concomitant]
     Dosage: 8 MG, SINGLE
     Route: 048
  7. PROCHLORPERAZINE MALEATE [Concomitant]
     Dosage: 10 MG, TID PRN
     Route: 048
  8. BLOOD TRANSFUSION, AUXILIARY PRODUCTS [Concomitant]
  9. DIPHENHYDRAMINE HYDROCHLORIDE [Concomitant]
     Dosage: 25 MG, SINGLE
     Route: 048
  10. ACETAMINOPHEN [Concomitant]
     Dosage: 325 MG, SINGLE
     Route: 048
  11. LIPITOR [Concomitant]
     Dosage: 60 MG, UNK
     Route: 048
  12. LORAZEPAM [Concomitant]
     Dosage: 1 MG, QD
     Route: 048
  13. LEXAPRO [Concomitant]
     Dosage: 15 MG, QD
     Route: 048
  14. FOLIC ACID [Concomitant]
     Dosage: 1 MG, QD
     Route: 048
  15. DILTIAZEM HCL [Concomitant]
     Dosage: 120 MG, BID
     Route: 048
  16. AVODART [Concomitant]
     Dosage: 0.5 MG, QD
     Route: 048
  17. FLUCONAZOLE [Concomitant]
     Dosage: 200 MG, BID
     Route: 048
  18. EXJADE [Concomitant]
     Dosage: 1500 MG, QD
     Route: 048
  19. INFLUENZA VACCINE [Concomitant]
     Indication: IMMUNISATION
     Dosage: UNK
     Dates: start: 201211, end: 201211

REACTIONS (8)
  - Cellulitis [Recovered/Resolved with Sequelae]
  - Injury [Unknown]
  - Weight decreased [Recovering/Resolving]
  - Somnolence [Unknown]
  - Blood count abnormal [Recovered/Resolved]
  - Asthenia [Unknown]
  - Fatigue [Unknown]
  - Dizziness [Recovered/Resolved]
